FAERS Safety Report 5954017-6 (Version None)
Quarter: 2008Q4

REPORT INFORMATION
  Report Type: 
  Country: None (occurrence: None)
  Receive Date: 20081114
  Receipt Date: 20081104
  Transmission Date: 20090506
  Serious: Yes (Other)
  Sender: FDA-Public Use
  Company Number: US-PFIZER INC-2008093932

PATIENT
  Sex: Female
  Weight: 104.3 kg

DRUGS (5)
  1. GEODON [Suspect]
     Indication: BIPOLAR DISORDER
  2. LISINOPRIL [Concomitant]
  3. METFORMIN HCL [Concomitant]
  4. VYTORIN [Concomitant]
     Indication: HYPERLIPIDAEMIA
  5. LEVOTHYROXINE SODIUM [Concomitant]
     Indication: HYPOTHYROIDISM

REACTIONS (7)
  - BIPOLAR DISORDER [None]
  - BLOOD AMYLASE NORMAL [None]
  - FLUID RETENTION [None]
  - INAPPROPRIATE ANTIDIURETIC HORMONE SECRETION [None]
  - LIPASE NORMAL [None]
  - RASH [None]
  - SEDATION [None]
